FAERS Safety Report 25627842 (Version 2)
Quarter: 2025Q3

REPORT INFORMATION
  Report Type: Spontaneous
  Country: JP (occurrence: JP)
  Receive Date: 20250731
  Receipt Date: 20250811
  Transmission Date: 20251021
  Serious: Yes (Hospitalization)
  Sender: SANOFI AVENTIS
  Company Number: JP-MEIJISEIKA-202504393_P_1

PATIENT
  Age: 13 Year
  Sex: Male

DRUGS (1)
  1. REZUROCK [Suspect]
     Active Substance: BELUMOSUDIL
     Dosage: 100 MG, QD
     Route: 048

REACTIONS (1)
  - Pancreatitis [Recovered/Resolved]
